FAERS Safety Report 11793374 (Version 1)
Quarter: 2015Q4

REPORT INFORMATION
  Report Type: Spontaneous
  Country: US (occurrence: None)
  Receive Date: 20151201
  Receipt Date: 20151201
  Transmission Date: 20160305
  Serious: Yes (Hospitalization)
  Sender: FDA-Public Use
  Company Number: None

PATIENT
  Age: 35 Year
  Sex: Male
  Weight: 118 kg

DRUGS (2)
  1. JANUMET UNKNOWN [Concomitant]
  2. INVOKANA [Suspect]
     Active Substance: CANAGLIFLOZIN
     Indication: TYPE 2 DIABETES MELLITUS
     Route: 048

REACTIONS (8)
  - Tachycardia [None]
  - Glycosuria [None]
  - Metabolic acidosis [None]
  - Hypernatraemia [None]
  - Hypertension [None]
  - Hypercholesterolaemia [None]
  - Blood triglycerides increased [None]
  - Hyperglycaemia [None]

NARRATIVE: CASE EVENT DATE: 20151129
